FAERS Safety Report 9540358 (Version 1)
Quarter: 2013Q2

REPORT INFORMATION
  Report Type: Spontaneous
  Country: US (occurrence: None)
  Receive Date: 20130524
  Receipt Date: 20130524
  Transmission Date: 20140414
  Serious: Yes (Other)
  Sender: FDA-Public Use
  Company Number: PHEH2013US004680

PATIENT
  Age: 40 Year
  Sex: Female

DRUGS (1)
  1. GILENYA [Suspect]
     Indication: MULTIPLE SCLEROSIS
     Route: 048
     Dates: start: 20110601, end: 20130222

REACTIONS (7)
  - Fatigue [None]
  - Immune system disorder [None]
  - Urinary tract infection [None]
  - Tinea infection [None]
  - Fungal infection [None]
  - Asthenia [None]
  - White blood cell count decreased [None]
